FAERS Safety Report 21465659 (Version 1)
Quarter: 2022Q4

REPORT INFORMATION
  Report Type: Spontaneous
  Country: FR (occurrence: FR)
  Receive Date: 20221017
  Receipt Date: 20221017
  Transmission Date: 20230112
  Serious: Yes (Death, Other)
  Sender: FDA-Public Use
  Company Number: FR-AMGEN-FRASP2022175831

PATIENT

DRUGS (2)
  1. FILGRASTIM [Suspect]
     Active Substance: FILGRASTIM
     Indication: Neutropenia
     Dosage: 300 MICROGRAM, QD
     Route: 065
  2. ERIBULIN [Suspect]
     Active Substance: ERIBULIN
     Indication: Product used for unknown indication
     Dosage: 1.23 MILLIGRAM/SQ. METER (OVER 10 MIN ON DAYS 1 AND 8 OF AN EVERY 21-DAY CYCLE)
     Route: 065

REACTIONS (7)
  - Death [Fatal]
  - Neutropenia [Unknown]
  - Febrile neutropenia [Unknown]
  - Blood albumin decreased [Unknown]
  - Aspartate aminotransferase increased [Unknown]
  - Blood bilirubin increased [Unknown]
  - Weight decreased [Unknown]
